FAERS Safety Report 19115898 (Version 2)
Quarter: 2021Q2

REPORT INFORMATION
  Report Type: Spontaneous
  Country: IL (occurrence: IL)
  Receive Date: 20210409
  Receipt Date: 20210414
  Transmission Date: 20210717
  Serious: Yes (Other)
  Sender: FDA-Public Use
  Company Number: IL-ROCHE-2806605

PATIENT
  Age: 76 Year
  Sex: Female

DRUGS (2)
  1. MABTHERA [Suspect]
     Active Substance: RITUXIMAB
     Route: 041
     Dates: start: 20191205
  2. MABTHERA [Suspect]
     Active Substance: RITUXIMAB
     Indication: NEUROMYELITIS OPTICA SPECTRUM DISORDER
     Route: 041
     Dates: start: 20191121

REACTIONS (4)
  - Fear [Unknown]
  - Off label use [Unknown]
  - Hepatic enzyme increased [Unknown]
  - Mental impairment [Unknown]

NARRATIVE: CASE EVENT DATE: 20210406
